FAERS Safety Report 8024981-2 (Version None)
Quarter: 2012Q1

REPORT INFORMATION
  Report Type: 
  Country: None (occurrence: None)
  Receive Date: 20120105
  Receipt Date: 20111227
  Transmission Date: 20120608
  Serious: Yes (Hospitalization, Other)
  Sender: FDA-Public Use
  Company Number: US-BAYER-2011-028613

PATIENT
  Age: 21 Year
  Sex: Female
  Weight: 58.957 kg

DRUGS (2)
  1. LORTAB [Concomitant]
  2. YAZ [Suspect]

REACTIONS (2)
  - PAIN [None]
  - GASTROINTESTINAL DISORDER [None]
